FAERS Safety Report 10187787 (Version 2)
Quarter: 2016Q1

REPORT INFORMATION
  Report Type: Spontaneous
  Country: US (occurrence: US)
  Receive Date: 20140522
  Receipt Date: 20160118
  Transmission Date: 20160525
  Serious: Yes (Other)
  Sender: FDA-Public Use
  Company Number: US-SANOFI-AVENTIS-2013SA090813

PATIENT
  Age: 59 Year
  Sex: Female

DRUGS (4)
  1. LANTUS SOLOSTAR [Suspect]
     Active Substance: INSULIN GLARGINE
     Indication: TYPE 2 DIABETES MELLITUS
     Dosage: DOSE:60 UNIT(S)
     Route: 058
     Dates: start: 2011
  2. LANTUS SOLOSTAR [Suspect]
     Active Substance: INSULIN GLARGINE
     Indication: TYPE 2 DIABETES MELLITUS
     Dosage: DOSE:80 UNIT(S)
     Route: 058
     Dates: start: 2013, end: 20160108
  3. SOLOSTAR [Concomitant]
     Active Substance: DEVICE
     Dates: start: 2011, end: 20160108
  4. CORTISONE [Suspect]
     Active Substance: CORTISONE\HYDROCORTISONE
     Route: 065

REACTIONS (7)
  - Nausea [Recovering/Resolving]
  - Feeling abnormal [Unknown]
  - Neck injury [Unknown]
  - Blood glucose increased [Unknown]
  - Nerve compression [Unknown]
  - Seizure [Unknown]
  - Blood glucose decreased [Unknown]
